FAERS Safety Report 4418582-2 (Version None)
Quarter: 2004Q3

REPORT INFORMATION
  Report Type: 
  Country: None (occurrence: None)
  Receive Date: 20040806
  Receipt Date: 20040802
  Transmission Date: 20050211
  Serious: Yes (Disabling)
  Sender: FDA-Public Use
  Company Number: 2004GB01876

PATIENT
  Age: 59 Year
  Sex: Female
  Weight: 85.2 kg

DRUGS (5)
  1. CRESTOR [Suspect]
     Indication: HYPERCHOLESTEROLAEMIA
     Dosage: 1 DF QD PO
     Route: 048
     Dates: start: 20031201, end: 20040501
  2. OXIS [Concomitant]
  3. PULMICORT [Concomitant]
  4. PREDNISOLONE [Concomitant]
  5. AMLODIPINE [Concomitant]

REACTIONS (3)
  - ASTHMA [None]
  - BRONCHIECTASIS [None]
  - COMPUTERISED TOMOGRAM ABNORMAL [None]
